FAERS Safety Report 25952494 (Version 2)
Quarter: 2025Q4

REPORT INFORMATION
  Report Type: Spontaneous
  Country: US (occurrence: US)
  Receive Date: 20251023
  Receipt Date: 20251103
  Transmission Date: 20260117
  Serious: No
  Sender: BIOCON
  Company Number: US-MIMS-BCONMC-17356

PATIENT

DRUGS (2)
  1. SEMGLEE (INSULIN GLARGINE-YFGN) [Suspect]
     Active Substance: INSULIN GLARGINE-YFGN
     Indication: Type 2 diabetes mellitus
     Dosage: 98 UNITS/ML (FIVE TIMES DAILY)
     Route: 065
  2. SEMGLEE (INSULIN GLARGINE-YFGN) [Suspect]
     Active Substance: INSULIN GLARGINE-YFGN

REACTIONS (3)
  - Inappropriate schedule of product administration [Unknown]
  - Device mechanical issue [Unknown]
  - Device breakage [Unknown]
